FAERS Safety Report 12214154 (Version 1)
Quarter: 2016Q1

REPORT INFORMATION
  Report Type: Spontaneous
  Country: US (occurrence: US)
  Receive Date: 20160328
  Receipt Date: 20160328
  Transmission Date: 20160526
  Serious: No
  Sender: FDA-Public Use
  Company Number: US-BAUSCH-BL-2015-028257

PATIENT
  Age: 68 Year
  Sex: Female
  Weight: 51.76 kg

DRUGS (2)
  1. SYNTHROID [Concomitant]
     Active Substance: LEVOTHYROXINE SODIUM
     Indication: HYPOTHYROIDISM
  2. RETIN-A [Suspect]
     Active Substance: TRETINOIN
     Indication: ACNE CYSTIC
     Dosage: ONE APPLICATION ONCE NIGHTLY
     Route: 061

REACTIONS (1)
  - Dry skin [Not Recovered/Not Resolved]

NARRATIVE: CASE EVENT DATE: 2015
